FAERS Safety Report 15151558 (Version 1)
Quarter: 2018Q3

REPORT INFORMATION
  Report Type: Spontaneous
  Country: CN (occurrence: CN)
  Receive Date: 20180716
  Receipt Date: 20180716
  Transmission Date: 20181010
  Serious: Yes (Disabling)
  Sender: FDA-Public Use
  Company Number: CN-SA-2018SA183296

PATIENT
  Age: 91 Year
  Sex: Male
  Weight: 70 kg

DRUGS (19)
  1. ASPIRIN [ACETYLSALICYLIC ACID] [Suspect]
     Active Substance: ASPIRIN
     Indication: PLATELET AGGREGATION INHIBITION
     Dosage: 100 MG, QD
     Route: 048
     Dates: start: 20180429, end: 20180504
  2. GLUCOSE INJECTION [Suspect]
     Active Substance: DEXTROSE
     Dosage: 44 ML, TID
     Route: 065
     Dates: start: 20180430, end: 20180503
  3. GLUCOSE [Concomitant]
     Active Substance: DEXTROSE
     Dosage: 250 ML, QD
     Route: 041
     Dates: start: 20180428, end: 20180503
  4. CEFOPERAZONE SODIUM AND SULBACTAM SODIUM [Suspect]
     Active Substance: CEFOPERAZONE SODIUM\SULBACTAM SODIUM
     Dosage: 3 G, BID
     Route: 041
     Dates: start: 20180501, end: 20180503
  5. DIPROPHYLLINE [Concomitant]
     Active Substance: DYPHYLLINE
     Indication: ASTHMA
  6. SODIUM CHLORIDE. [Suspect]
     Active Substance: SODIUM CHLORIDE
     Dosage: 100 ML, BID
     Route: 041
     Dates: start: 20180428, end: 20180503
  7. SODIUM CHLORIDE. [Concomitant]
     Active Substance: SODIUM CHLORIDE
     Dosage: 100 ML, BID
     Route: 041
     Dates: start: 20180428, end: 20180503
  8. AMBROXOL HYDROCHLORIDE [Concomitant]
     Active Substance: AMBROXOL HYDROCHLORIDE
     Dosage: 30 MG, BID
     Route: 041
     Dates: start: 20180428, end: 20180503
  9. ENOXAPARIN SODIUM. [Suspect]
     Active Substance: ENOXAPARIN SODIUM
     Indication: PLATELET AGGREGATION INHIBITION
     Dosage: 4000 U, QD
     Route: 058
     Dates: start: 20180429, end: 20180503
  10. CLOPIDOGREL HYDROGEN SULFATE [Suspect]
     Active Substance: CLOPIDOGREL BISULFATE
     Indication: PLATELET AGGREGATION INHIBITION
     Dosage: 75 MG, QD
     Route: 048
     Dates: start: 20180428, end: 20180504
  11. SODIUM CHLORIDE. [Suspect]
     Active Substance: SODIUM CHLORIDE
     Dosage: 50 ML, QD
     Route: 041
     Dates: start: 20180428, end: 20180503
  12. LIPITOR [Suspect]
     Active Substance: ATORVASTATIN CALCIUM
     Dosage: 20 MG, QD
     Route: 048
     Dates: start: 20180428, end: 20180502
  13. METHYLPREDNISOLONE SODIUM SUCCINATE. [Suspect]
     Active Substance: METHYLPREDNISOLONE SODIUM SUCCINATE
     Indication: INFLAMMATION
     Dosage: 40 MG, TID
     Route: 065
     Dates: start: 20180430, end: 20180503
  14. DIPROPHYLLINE [Concomitant]
     Active Substance: DYPHYLLINE
     Indication: INFLAMMATION
     Dosage: 0.75 G, QD
     Route: 065
     Dates: start: 20180428, end: 20180503
  15. METHYLPREDNISOLONE SODIUM SUCCINATE. [Suspect]
     Active Substance: METHYLPREDNISOLONE SODIUM SUCCINATE
     Indication: ASTHMA
  16. LANSOPRAZOLE. [Suspect]
     Active Substance: LANSOPRAZOLE
     Indication: STRESS ULCER
     Dosage: 30 MG, QD
     Route: 065
     Dates: start: 20180429, end: 20180503
  17. CEFOPERAZONE SODIUM AND SULBACTAM SODIUM [Suspect]
     Active Substance: CEFOPERAZONE SODIUM\SULBACTAM SODIUM
     Indication: LUNG INFECTION
     Dosage: 1.5 G, BID
     Route: 041
     Dates: start: 20180428, end: 20180430
  18. SODIUM CHLORIDE. [Concomitant]
     Active Substance: SODIUM CHLORIDE
     Dosage: 250 ML, QD
     Route: 041
     Dates: start: 20180428, end: 20180503
  19. GLUCOSE [Concomitant]
     Active Substance: DEXTROSE
     Dosage: 44 ML, QD
     Route: 065
     Dates: start: 20180428, end: 20180503

REACTIONS (2)
  - Alanine aminotransferase increased [Unknown]
  - Blood bilirubin increased [Unknown]

NARRATIVE: CASE EVENT DATE: 20180502
